FAERS Safety Report 21010339 (Version 1)
Quarter: 2022Q2

REPORT INFORMATION
  Report Type: Spontaneous
  Country: US (occurrence: None)
  Receive Date: 20220625
  Receipt Date: 20220625
  Transmission Date: 20220721
  Serious: Yes (Hospitalization)
  Sender: FDA-Public Use
  Company Number: None

PATIENT
  Age: 75 Year
  Sex: Female
  Weight: 61 kg

DRUGS (2)
  1. CARBOPLATIN [Suspect]
     Active Substance: CARBOPLATIN
     Dates: end: 20220526
  2. PACLITAXEL [Suspect]
     Active Substance: PACLITAXEL
     Dates: end: 20220609

REACTIONS (2)
  - Deep vein thrombosis [None]
  - Pain [None]

NARRATIVE: CASE EVENT DATE: 20220624
